FAERS Safety Report 4837121-5 (Version None)
Quarter: 2005Q4

REPORT INFORMATION
  Report Type: 
  Country: None (occurrence: None)
  Receive Date: 20051122
  Receipt Date: 20051108
  Transmission Date: 20060501
  Serious: Yes (Hospitalization)
  Sender: FDA-Public Use
  Company Number: US200511000043

PATIENT
  Age: 60 Year
  Sex: Male

DRUGS (2)
  1. CIALIS [Suspect]
     Dosage: 10 MG, ORAL
     Route: 048
     Dates: start: 20050901
  2. LEVITRA [Concomitant]

REACTIONS (2)
  - ARRHYTHMIA [None]
  - COUGH [None]
